FAERS Safety Report 5604328-9 (Version None)
Quarter: 2008Q1

REPORT INFORMATION
  Report Type: 
  Country: None (occurrence: None)
  Receive Date: 20080128
  Receipt Date: 20080117
  Transmission Date: 20080703
  Serious: Yes (Life-Threatening, Hospitalization)
  Sender: FDA-Public Use
  Company Number: B0501041A

PATIENT
  Age: 47 Year
  Sex: Female
  Weight: 95 kg

DRUGS (2)
  1. ARIXTRA [Suspect]
     Dosage: .8ML PER DAY
     Route: 058
     Dates: start: 20071204, end: 20071207
  2. PREVISCAN [Concomitant]
     Route: 048
     Dates: start: 20071206, end: 20071207

REACTIONS (7)
  - ANGIOEDEMA [None]
  - DRUG HYPERSENSITIVITY [None]
  - FACE OEDEMA [None]
  - LARYNGEAL OEDEMA [None]
  - OEDEMA PERIPHERAL [None]
  - RASH [None]
  - URTICARIA [None]
